FAERS Safety Report 15902773 (Version 1)
Quarter: 2019Q1

REPORT INFORMATION
  Report Type: Spontaneous
  Country: AR (occurrence: AR)
  Receive Date: 20190202
  Receipt Date: 20190202
  Transmission Date: 20190417
  Serious: Yes (Hospitalization)
  Sender: FDA-Public Use
  Company Number: AR-ROCHE-2255758

PATIENT
  Age: 6 Year
  Sex: Female

DRUGS (1)
  1. OMALIZUMAB. [Suspect]
     Active Substance: OMALIZUMAB
     Indication: ASTHMA
     Dosage: 150 MG, UNK
     Route: 065

REACTIONS (3)
  - Off label use [Unknown]
  - Pneumonia haemophilus [Recovering/Resolving]
  - Product use issue [Unknown]
